FAERS Safety Report 12728879 (Version 2)
Quarter: 2016Q3

REPORT INFORMATION
  Report Type: Spontaneous
  Country: US (occurrence: US)
  Receive Date: 20160909
  Receipt Date: 20160914
  Transmission Date: 20161109
  Serious: No
  Sender: FDA-Public Use
  Company Number: US-PFIZER INC-2016424189

PATIENT
  Sex: Male

DRUGS (8)
  1. LYRICA [Suspect]
     Active Substance: PREGABALIN
     Dosage: UNK, LESS THAN 50 MG
  2. LYRICA [Suspect]
     Active Substance: PREGABALIN
     Dosage: 150 UNK, UNK
  3. LYRICA [Suspect]
     Active Substance: PREGABALIN
     Dosage: 100 UNK, UNK
  4. LYRICA [Suspect]
     Active Substance: PREGABALIN
     Indication: NEUROPATHY PERIPHERAL
     Dosage: 200 MG, DAILY
  5. LYRICA [Suspect]
     Active Substance: PREGABALIN
     Dosage: 125 UNK, UNK
  6. LYRICA [Suspect]
     Active Substance: PREGABALIN
     Dosage: 50 UNK, UNK
  7. LYRICA [Suspect]
     Active Substance: PREGABALIN
     Dosage: 175 UNK, UNK
  8. LYRICA [Suspect]
     Active Substance: PREGABALIN
     Dosage: 75 UNK, UNK

REACTIONS (1)
  - Agitation [Not Recovered/Not Resolved]
